FAERS Safety Report 9719732 (Version 1)
Quarter: 2013Q4

REPORT INFORMATION
  Report Type: Spontaneous
  Country: AU (occurrence: AU)
  Receive Date: 20131128
  Receipt Date: 20131128
  Transmission Date: 20140711
  Serious: Yes (Hospitalization)
  Sender: FDA-Public Use
  Company Number: AU-ROCHE-1307025

PATIENT
  Age: 75 Year
  Sex: Female
  Weight: 95 kg

DRUGS (7)
  1. CEFTRIAXONE SODIUM [Suspect]
     Indication: PRODUCT USED FOR UNKNOWN INDICATION
     Route: 042
     Dates: start: 20130726
  2. ASPIRIN [Concomitant]
     Route: 065
  3. ESCITALOPRAM [Concomitant]
     Route: 048
  4. FRUSEMIDE [Concomitant]
     Route: 048
  5. PARACETAMOL [Concomitant]
     Route: 048
  6. PERINDOPRIL [Concomitant]
     Route: 048
  7. QUETIAPINE [Concomitant]
     Route: 048

REACTIONS (2)
  - Renal impairment [Recovering/Resolving]
  - Hypersensitivity vasculitis [Recovering/Resolving]
